FAERS Safety Report 5886499-2 (Version None)
Quarter: 2008Q3

REPORT INFORMATION
  Report Type: 
  Country: None (occurrence: None)
  Receive Date: 20080917
  Receipt Date: 20080912
  Transmission Date: 20090109
  Serious: Yes (Other)
  Sender: FDA-Public Use
  Company Number: GB-MERCK-0809GBR00074

PATIENT
  Age: 60 Year
  Sex: Male
  Weight: 119 kg

DRUGS (4)
  1. ZOCOR [Suspect]
     Indication: CARDIOVASCULAR EVENT PROPHYLAXIS
     Route: 048
     Dates: start: 20080829, end: 20080902
  2. DICLOFENAC [Concomitant]
     Route: 065
     Dates: start: 20080609
  3. NAPROXEN [Concomitant]
     Route: 065
     Dates: start: 20080805
  4. OMEPRAZOLE [Concomitant]
     Route: 065

REACTIONS (5)
  - CHILLS [None]
  - DRUG INTOLERANCE [None]
  - MYALGIA [None]
  - NAUSEA [None]
  - PAIN [None]
